FAERS Safety Report 5258201-9 (Version None)
Quarter: 2007Q1

REPORT INFORMATION
  Report Type: 
  Country: None (occurrence: None)
  Receive Date: 20070307
  Receipt Date: 20070227
  Transmission Date: 20070707
  Serious: Yes (Hospitalization, Disabling)
  Sender: FDA-Public Use
  Company Number: SG-MERCK-0612SGP00002

PATIENT
  Age: 84 Year
  Sex: Female

DRUGS (8)
  1. FOSAMAX [Suspect]
     Indication: OSTEOPOROSIS
     Route: 048
     Dates: start: 20040112
  2. CARVEDILOL [Concomitant]
     Route: 048
  3. NIFEDIPINE [Concomitant]
     Route: 048
  4. ACETAMINOPHEN [Concomitant]
     Route: 065
  5. PIROXICAM [Concomitant]
     Route: 061
  6. VITAMIN D (UNSPECIFIED) AND CALCIUM (UNSPECIFIED) [Concomitant]
     Route: 048
  7. ASCORBIC ACID AND CYANOCOBALAMIN AND FERROUS GLUCONATE AND FOLIC ACID [Concomitant]
     Route: 048
  8. ATENOLOL [Concomitant]
     Route: 048

REACTIONS (2)
  - FALL [None]
  - FEMUR FRACTURE [None]
